FAERS Safety Report 12558299 (Version 1)
Quarter: 2016Q3

REPORT INFORMATION
  Report Type: Spontaneous
  Country: US (occurrence: US)
  Receive Date: 20160714
  Receipt Date: 20160714
  Transmission Date: 20161109
  Serious: No
  Sender: FDA-Public Use
  Company Number: US-PFIZER INC-2016232362

PATIENT
  Age: 74 Year
  Sex: Male

DRUGS (1)
  1. LEVOFLOXACIN. [Suspect]
     Active Substance: LEVOFLOXACIN
     Dosage: UNK

REACTIONS (4)
  - Vomiting [Unknown]
  - Nausea [Unknown]
  - Drug hypersensitivity [Unknown]
  - Rash [Unknown]
